FAERS Safety Report 7486957-3 (Version None)
Quarter: 2011Q2

REPORT INFORMATION
  Report Type: 
  Country: None (occurrence: None)
  Receive Date: 20110517
  Receipt Date: 20110506
  Transmission Date: 20111010
  Serious: Yes (Hospitalization, Other)
  Sender: FDA-Public Use
  Company Number: US-RB-020017-10

PATIENT
  Age: 50 Year
  Sex: Female

DRUGS (1)
  1. SUBOXONE [Suspect]
     Indication: PRODUCT USED FOR UNKNOWN INDICATION
     Dosage: DOSING INFORMATION UNKNOWN
     Route: 065

REACTIONS (13)
  - PULMONARY EMBOLISM [None]
  - ABDOMINAL PAIN UPPER [None]
  - HAEMORRHAGE [None]
  - HEPATITIS C [None]
  - TREMOR [None]
  - BRONCHITIS [None]
  - INSOMNIA [None]
  - NASOPHARYNGITIS [None]
  - VOMITING [None]
  - LUNG INFECTION [None]
  - HYPERGLYCAEMIA [None]
  - APHTHOUS STOMATITIS [None]
  - PYREXIA [None]
